FAERS Safety Report 9106810 (Version 2)
Quarter: 2013Q3

REPORT INFORMATION
  Report Type: Spontaneous
  Country: AT (occurrence: AT)
  Receive Date: 20130221
  Receipt Date: 20130708
  Transmission Date: 20140515
  Serious: Yes (Life-Threatening, Hospitalization, Other)
  Sender: FDA-Public Use
  Company Number: AT-JNJFOC-20130204433

PATIENT
  Age: 65 Year
  Sex: Female

DRUGS (14)
  1. RISPERDAL [Suspect]
     Indication: PRODUCT USED FOR UNKNOWN INDICATION
     Route: 065
     Dates: start: 20130117, end: 20130128
  2. RISPERDAL [Suspect]
     Indication: PRODUCT USED FOR UNKNOWN INDICATION
     Dosage: SINCE MONTHS
     Route: 065
     Dates: end: 20130116
  3. QUILONORM [Suspect]
     Indication: DEPRESSION
     Route: 065
     Dates: start: 20130124
  4. QUILONORM [Suspect]
     Indication: DEPRESSION
     Route: 065
     Dates: start: 20121228, end: 20130102
  5. QUILONORM [Suspect]
     Indication: DEPRESSION
     Route: 065
     Dates: start: 20130103, end: 20130124
  6. TRITACE [Suspect]
     Indication: PRODUCT USED FOR UNKNOWN INDICATION
     Dosage: SINCE YEARS
     Route: 065
     Dates: end: 20130201
  7. SEROQUEL [Suspect]
     Indication: PRODUCT USED FOR UNKNOWN INDICATION
     Dosage: SINCE MONNTHS
     Route: 065
  8. VENLAFAB [Suspect]
     Indication: PRODUCT USED FOR UNKNOWN INDICATION
     Route: 065
     Dates: start: 20130109, end: 20130118
  9. VENLAFAB [Suspect]
     Indication: PRODUCT USED FOR UNKNOWN INDICATION
     Route: 065
     Dates: start: 20130119
  10. CIPRALEX [Concomitant]
     Dosage: SINCE MONTHS
     Route: 065
     Dates: end: 20130114
  11. LAMICTAL [Concomitant]
     Dosage: SINCE MONTH
     Route: 065
     Dates: end: 20130117
  12. EUTHYROX [Concomitant]
     Dosage: SINCE YEARS
     Route: 065
  13. PANTOLOC [Concomitant]
     Dosage: SINCE MONTHS
     Route: 065
  14. EDRONAX [Concomitant]
     Dosage: SINCE MONTH
     Route: 065
     Dates: start: 20130122

REACTIONS (1)
  - Ventricular extrasystoles [Recovered/Resolved]
